FAERS Safety Report 9393296 (Version 1)
Quarter: 2013Q3

REPORT INFORMATION
  Report Type: Spontaneous
  Country: US (occurrence: US)
  Receive Date: 20130710
  Receipt Date: 20130710
  Transmission Date: 20140515
  Serious: Yes (Other)
  Sender: FDA-Public Use
  Company Number: US-ASTRAZENECA-2013SE50271

PATIENT
  Age: 83 Year
  Sex: Female
  Weight: 64.4 kg

DRUGS (13)
  1. LISINOPRIL [Suspect]
     Indication: CARDIAC DISORDER
     Route: 048
     Dates: start: 2010
  2. METOPROLOL [Suspect]
     Indication: CARDIAC DISORDER
     Route: 048
     Dates: start: 2010
  3. ARIMIDEX [Suspect]
     Indication: BREAST CANCER
     Route: 048
     Dates: start: 2011
  4. BRILINTA [Suspect]
     Indication: CARDIAC DISORDER
     Route: 048
     Dates: start: 201306, end: 20130701
  5. BRILINTA [Suspect]
     Indication: ISCHAEMIC HEART DISEASE PROPHYLAXIS
     Route: 048
     Dates: start: 201306, end: 20130701
  6. BRILINTA [Suspect]
     Indication: CARDIAC DISORDER
     Route: 048
     Dates: start: 20130701
  7. BRILINTA [Suspect]
     Indication: ISCHAEMIC HEART DISEASE PROPHYLAXIS
     Route: 048
     Dates: start: 20130701
  8. ISOSORBIDE MONONITRATE [Concomitant]
     Indication: CARDIAC DISORDER
     Route: 048
     Dates: start: 2010
  9. RANEXA [Concomitant]
     Indication: CARDIAC DISORDER
     Route: 048
     Dates: start: 2010
  10. ASPIRIN [Concomitant]
     Indication: CARDIAC DISORDER
     Route: 048
     Dates: start: 2010
  11. ATORVASTATIN [Concomitant]
     Indication: BLOOD CHOLESTEROL ABNORMAL
     Route: 048
  12. HYDROCHLORTHIAZIDE [Concomitant]
     Indication: CARDIAC DISORDER
     Route: 048
     Dates: start: 2010
  13. NITROGLYCERIN [Concomitant]
     Indication: CHEST PAIN
     Dosage: PRN
     Route: 048
     Dates: start: 2010

REACTIONS (2)
  - Breast cancer female [Unknown]
  - Abnormal sensation in eye [Unknown]
